FAERS Safety Report 12571024 (Version 1)
Quarter: 2016Q3

REPORT INFORMATION
  Report Type: Spontaneous
  Country: US (occurrence: US)
  Receive Date: 20160719
  Receipt Date: 20160719
  Transmission Date: 20161109
  Serious: Yes (Other)
  Sender: FDA-Public Use
  Company Number: US-ACI HEALTHCARE LIMITED-1055251

PATIENT
  Age: 65 Year
  Sex: Female

DRUGS (14)
  1. LANSOPRAZOLE. [Concomitant]
     Active Substance: LANSOPRAZOLE
     Route: 048
  2. CONJUGATED LINOLEIC ACID [Concomitant]
  3. MAGNESIUM SUPPLEMENTS [Concomitant]
  4. INSULIN ASPART [Concomitant]
     Active Substance: INSULIN ASPART
     Route: 058
  5. TERIPARATIDE [Concomitant]
     Active Substance: TERIPARATIDE
     Route: 058
  6. MULTIPLE SUPPLEMENTS [Concomitant]
  7. PRAVASTATIN. [Concomitant]
     Active Substance: PRAVASTATIN
     Route: 048
  8. TRAMADOL. [Concomitant]
     Active Substance: TRAMADOL
     Route: 048
  9. GABAPENTIN. [Suspect]
     Active Substance: GABAPENTIN
     Route: 065
  10. HYDROXYCHLOROQUINE SULFATE. [Concomitant]
     Active Substance: HYDROXYCHLOROQUINE SULFATE
     Route: 048
  11. MULTIPLE VITAMINS [Concomitant]
     Active Substance: VITAMINS
  12. WARFARIN SODIUM. [Concomitant]
     Active Substance: WARFARIN SODIUM
     Route: 048
  13. METOPROLOL TARTATE [Concomitant]
     Active Substance: METOPROLOL TARTRATE
     Route: 048
  14. DOXYCYCLINE. [Concomitant]
     Active Substance: DOXYCYCLINE
     Route: 048

REACTIONS (1)
  - Hallucination, visual [Recovered/Resolved]
